FAERS Safety Report 11097198 (Version 1)
Quarter: 2015Q2

REPORT INFORMATION
  Report Type: Spontaneous
  Country: CH (occurrence: GB)
  Receive Date: 20150507
  Receipt Date: 20150507
  Transmission Date: 20150821
  Serious: Yes (Hospitalization)
  Sender: FDA-Public Use
  Company Number: CH-LPDUSPRD-20150295

PATIENT
  Age: 37 Year
  Sex: Female
  Weight: 78 kg

DRUGS (5)
  1. SPATONE [Concomitant]
     Dosage: DOSE NOT PROVIDED
     Route: 065
  2. CYCLIZINE [Concomitant]
     Active Substance: CYCLIZINE
     Dosage: 50 MG
     Route: 065
  3. FERROUS FUMARATE [Concomitant]
     Active Substance: FERROUS FUMARATE
     Dosage: 305 MG
     Route: 065
  4. PYBOGEL [Concomitant]
     Dosage: DOSE NOT PROVIDED
     Route: 065
  5. FERINJECT [Suspect]
     Active Substance: FERRIC CARBOXYMALTOSE
     Dosage: DOSE NOT PROVIDED
     Route: 042

REACTIONS (6)
  - Photophobia [Recovering/Resolving]
  - Exposure during pregnancy [Unknown]
  - Mouth ulceration [Recovering/Resolving]
  - Somnolence [Recovering/Resolving]
  - Musculoskeletal stiffness [Recovering/Resolving]
  - Headache [Recovering/Resolving]

NARRATIVE: CASE EVENT DATE: 20150407
